FAERS Safety Report 5026176-3 (Version None)
Quarter: 2006Q2

REPORT INFORMATION
  Report Type: 
  Country: None (occurrence: None)
  Receive Date: 20060608
  Receipt Date: 20060526
  Transmission Date: 20061013
  Serious: Yes (Hospitalization)
  Sender: FDA-Public Use
  Company Number: US200511001247

PATIENT
  Age: 40 Year
  Sex: Female
  Weight: 112.5 kg

DRUGS (10)
  1. ZYPREXA [Suspect]
     Dates: start: 20020101, end: 20030101
  2. RISPERIDONE [Concomitant]
  3. HALDOL [Concomitant]
  4. DIVALPROEX SODIUM [Concomitant]
  5. WELLBUTRIN [Concomitant]
  6. CELEXA [Concomitant]
  7. PAXIL [Concomitant]
  8. EFFEXOR [Concomitant]
  9. TRIAMCINOLONE [Concomitant]
  10. ZOLOFT [Concomitant]

REACTIONS (8)
  - DIABETES MELLITUS [None]
  - ELECTROLYTE IMBALANCE [None]
  - EMOTIONAL DISTRESS [None]
  - GENERAL PHYSICAL HEALTH DETERIORATION [None]
  - HYPERTENSION [None]
  - MYOCARDIAL ISCHAEMIA [None]
  - OBESITY [None]
  - OEDEMA PERIPHERAL [None]
